FAERS Safety Report 14404456 (Version 2)
Quarter: 2018Q1

REPORT INFORMATION
  Report Type: Report from Study
  Country: None (occurrence: NL)
  Receive Date: 20180117
  Receipt Date: 20180213
  Transmission Date: 20180509
  Serious: Yes (Death)
  Sender: FDA-Public Use
  Company Number: NL-ABBVIE-18K-114-2226641-00

PATIENT
  Age: 69 Year
  Sex: Female

DRUGS (2)
  1. DUODOPA [Suspect]
     Active Substance: CARBIDOPA\LEVODOPA
     Indication: PARKINSON^S DISEASE
     Dosage: MD:  4.0; CD:1.0; ED: 1.2
     Route: 050
     Dates: start: 20131126, end: 2013
  2. DUODOPA [Suspect]
     Active Substance: CARBIDOPA\LEVODOPA
     Dosage: 1.2 ML/HOUR
     Route: 050
     Dates: start: 20131210, end: 20180103

REACTIONS (2)
  - Cervical vertebral fracture [Fatal]
  - Fall [Fatal]

NARRATIVE: CASE EVENT DATE: 20180103
